FAERS Safety Report 5270851-2 (Version None)
Quarter: 2007Q1

REPORT INFORMATION
  Report Type: 
  Country: None (occurrence: None)
  Receive Date: 20070321
  Receipt Date: 20070312
  Transmission Date: 20070707
  Serious: Yes (Death, Life-Threatening, Hospitalization)
  Sender: FDA-Public Use
  Company Number: 2006AP06039

PATIENT
  Age: 26945 Day
  Sex: Female

DRUGS (10)
  1. IRESSA [Suspect]
     Indication: NON-SMALL CELL LUNG CANCER STAGE II
     Route: 048
     Dates: start: 20060117, end: 20061102
  2. IRESSA [Suspect]
     Indication: LUNG ADENOCARCINOMA
     Route: 048
     Dates: start: 20060117, end: 20061102
  3. IRESSA [Suspect]
     Route: 048
     Dates: start: 20061104, end: 20061111
  4. IRESSA [Suspect]
     Route: 048
     Dates: start: 20061104, end: 20061111
  5. IRESSA [Suspect]
     Route: 048
     Dates: start: 20061115, end: 20061117
  6. IRESSA [Suspect]
     Route: 048
     Dates: start: 20061115, end: 20061117
  7. IRESSA [Suspect]
     Route: 048
     Dates: start: 20061123, end: 20061218
  8. IRESSA [Suspect]
     Route: 048
     Dates: start: 20061123, end: 20061218
  9. NORVASK [Concomitant]
     Indication: HYPERTENSION
     Route: 048
     Dates: start: 19950101
  10. ZESTRIL [Concomitant]
     Indication: HYPERTENSION
     Route: 048
     Dates: start: 19950101

REACTIONS (2)
  - DIARRHOEA [None]
  - RENAL FAILURE [None]
